FAERS Safety Report 8317418-7 (Version None)
Quarter: 2012Q2

REPORT INFORMATION
  Report Type: 
  Country: None (occurrence: None)
  Receive Date: 20120427
  Receipt Date: 20120416
  Transmission Date: 20120825
  Serious: Yes (Hospitalization)
  Sender: FDA-Public Use
  Company Number: JP-JNJFOC-20120409210

PATIENT
  Age: 81 Year
  Sex: Male
  Weight: 58 kg

DRUGS (9)
  1. ALPRAZOLAM [Concomitant]
     Indication: INSOMNIA
     Dosage: INTERVAL REPORTED AS PRN (AS NEEDED)
     Route: 048
  2. REMICADE [Suspect]
     Route: 042
     Dates: start: 20100427
  3. REMICADE [Suspect]
     Route: 042
     Dates: start: 20100817
  4. REMICADE [Suspect]
     Route: 042
     Dates: start: 20100330
  5. OXAROL [Concomitant]
     Indication: PSORIASIS
  6. REMICADE [Suspect]
     Route: 042
     Dates: start: 20100622
  7. AMLODIPINE [Concomitant]
     Indication: HYPERTENSION
     Route: 048
  8. REMICADE [Suspect]
     Indication: PSORIASIS
     Route: 042
     Dates: start: 20100316
  9. CYCLOSPORINE [Concomitant]
     Indication: PSORIASIS
     Route: 048

REACTIONS (1)
  - LUNG NEOPLASM MALIGNANT [None]
